FAERS Safety Report 8285165-6 (Version None)
Quarter: 2012Q2

REPORT INFORMATION
  Report Type: 
  Country: None (occurrence: None)
  Receive Date: 20120413
  Receipt Date: 20110815
  Transmission Date: 20120825
  Serious: No
  Sender: FDA-Public Use
  Company Number: US-ASTRAZENECA-2011SE49125

PATIENT
  Sex: Female

DRUGS (6)
  1. LYRICA [Concomitant]
     Route: 048
     Dates: start: 20110614
  2. OXYBUTYNIN CHLORIDE [Concomitant]
     Dates: start: 20110311
  3. NEXIUM [Suspect]
     Route: 048
     Dates: start: 20110815
  4. DONNATAL [Concomitant]
     Dates: start: 20110311
  5. ZESTRIL [Suspect]
     Route: 048
     Dates: start: 20110311
  6. SIMVASTATIN [Concomitant]
     Dates: start: 20110311

REACTIONS (3)
  - OSTEOPOROSIS [None]
  - URINARY INCONTINENCE [None]
  - BRONCHIOLITIS [None]
